FAERS Safety Report 8827508 (Version 3)
Quarter: 2015Q2

REPORT INFORMATION
  Report Type: Spontaneous
  Country: US (occurrence: US)
  Receive Date: 20121008
  Receipt Date: 20150410
  Transmission Date: 20150821
  Serious: Yes (Hospitalization, Other)
  Sender: FDA-Public Use
  Company Number: US-BAYER-2012-103563

PATIENT
  Age: 44 Year
  Sex: Female

DRUGS (1)
  1. YAZ [Suspect]
     Active Substance: DROSPIRENONE\ETHINYL ESTRADIOL
     Dosage: UNK
     Dates: start: 20100101, end: 20110701

REACTIONS (8)
  - Emotional distress [None]
  - Pulmonary embolism [None]
  - Injury [None]
  - Anxiety [None]
  - Pain [None]
  - Deep vein thrombosis [None]
  - Anhedonia [None]
  - General physical health deterioration [None]

NARRATIVE: CASE EVENT DATE: 20110529
